FAERS Safety Report 25150556 (Version 1)
Quarter: 2025Q2

REPORT INFORMATION
  Report Type: Spontaneous
  Country: ES (occurrence: ES)
  Receive Date: 20250402
  Receipt Date: 20250402
  Transmission Date: 20250717
  Serious: Yes (Life-Threatening, Hospitalization, Other)
  Sender: FRESENIUS KABI
  Company Number: ES-FreseniusKabi-FK202504628

PATIENT
  Age: 63 Year
  Sex: Female
  Weight: 78.2 kg

DRUGS (34)
  1. PEMETREXED [Suspect]
     Active Substance: PEMETREXED
     Indication: Non-small cell lung cancer
     Dosage: 500 MILLIGRAM, 3W?FOA: INFUSION
     Route: 042
     Dates: start: 20241024, end: 20241024
  2. PEMETREXED [Suspect]
     Active Substance: PEMETREXED
     Dosage: 500 MILLIGRAM, 3W?FOA: INFUSION
     Route: 042
     Dates: start: 20241115, end: 20241115
  3. PEMETREXED [Suspect]
     Active Substance: PEMETREXED
     Dosage: 500 MILLIGRAM, 3W?FOA: INFUSION
     Route: 042
     Dates: start: 20241205, end: 20241205
  4. CARBOPLATIN [Suspect]
     Active Substance: CARBOPLATIN
     Indication: Non-small cell lung cancer
     Dosage: 480 MILLIGRAM, 3W?FOA: INFUSION
     Route: 042
     Dates: start: 20241024, end: 20241024
  5. CARBOPLATIN [Suspect]
     Active Substance: CARBOPLATIN
     Dosage: 480 MILLIGRAM, 3W?FOA: INFUSION
     Route: 042
     Dates: start: 20241115, end: 20241115
  6. CARBOPLATIN [Suspect]
     Active Substance: CARBOPLATIN
     Dosage: 480 MILLIGRAM, 3W?FOA: INFUSION
     Route: 042
     Dates: start: 20241205, end: 20241205
  7. VUDALIMAB [Suspect]
     Active Substance: VUDALIMAB
     Indication: Non-small cell lung cancer
     Dosage: 750 MILLIGRAM, 3W?FOA: INFUSION
     Route: 042
     Dates: start: 20241024, end: 20241024
  8. VUDALIMAB [Suspect]
     Active Substance: VUDALIMAB
     Dosage: 750 MILLIGRAM, 3W?FOA: INFUSION
     Route: 042
     Dates: start: 20241115, end: 20241115
  9. VUDALIMAB [Suspect]
     Active Substance: VUDALIMAB
     Dosage: 750 MILLIGRAM, 3W?FOA: INFUSION
     Route: 042
     Dates: start: 20241205, end: 20241205
  10. MORPHINE [Concomitant]
     Active Substance: MORPHINE
     Indication: Product used for unknown indication
     Dates: start: 2024
  11. LORAZEPAM [Concomitant]
     Active Substance: LORAZEPAM
     Indication: Product used for unknown indication
     Dates: start: 20241005
  12. MYCOSTATIN [Concomitant]
     Active Substance: NYSTATIN
     Indication: Product used for unknown indication
     Dates: start: 20241024
  13. SIMVASTATIN [Concomitant]
     Active Substance: SIMVASTATIN
     Indication: Product used for unknown indication
     Dates: start: 2023
  14. METAMIZOLE MAGNESIUM [Concomitant]
     Active Substance: METAMIZOLE MAGNESIUM
     Indication: Product used for unknown indication
     Dates: start: 20240708
  15. FOLI DOCE [Concomitant]
     Indication: Product used for unknown indication
     Dates: start: 20241008, end: 20241014
  16. DENOSUMAB [Concomitant]
     Active Substance: DENOSUMAB
     Indication: Product used for unknown indication
     Dates: start: 20241009
  17. OPTOVIT E [Concomitant]
     Indication: Product used for unknown indication
     Dates: start: 20241011
  18. FENTANYL CITRATE [Concomitant]
     Active Substance: FENTANYL CITRATE
     Indication: Product used for unknown indication
     Dates: start: 20241017
  19. LYRICA [Concomitant]
     Active Substance: PREGABALIN
     Indication: Product used for unknown indication
     Dates: start: 20241024
  20. METOCLOPRAMIDE [Concomitant]
     Active Substance: METOCLOPRAMIDE
     Indication: Product used for unknown indication
     Dates: start: 20241024
  21. DEXAMETHASONE [Concomitant]
     Active Substance: DEXAMETHASONE
     Indication: Product used for unknown indication
     Dates: start: 20241024
  22. PREGABALIN [Concomitant]
     Active Substance: PREGABALIN
     Indication: Product used for unknown indication
     Dates: start: 20241017
  23. FENTANYL [Concomitant]
     Active Substance: FENTANYL
     Indication: Product used for unknown indication
     Dates: start: 20241018
  24. OMEPRAZOLE [Concomitant]
     Active Substance: OMEPRAZOLE
     Indication: Product used for unknown indication
     Dates: start: 20241114
  25. LORATADINE [Concomitant]
     Active Substance: LORATADINE
     Indication: Product used for unknown indication
     Dates: start: 20241114
  26. DEXAMETHASONE [Concomitant]
     Active Substance: DEXAMETHASONE
     Indication: Product used for unknown indication
     Dates: start: 20241125
  27. LEXXEMA [Concomitant]
     Indication: Product used for unknown indication
     Dates: start: 20241127
  28. POLARAMINE [Concomitant]
     Active Substance: DEXCHLORPHENIRAMINE MALEATE
     Indication: Product used for unknown indication
     Dates: start: 20241130, end: 20241204
  29. AMOXICILLIN\CLAVULANIC ACID [Concomitant]
     Active Substance: AMOXICILLIN\CLAVULANIC ACID
     Indication: Product used for unknown indication
     Dates: start: 20241206, end: 20241213
  30. TRIAMCINOLONE [Concomitant]
     Active Substance: TRIAMCINOLONE
     Indication: Product used for unknown indication
     Dates: start: 20241210, end: 20241223
  31. GLYCERIN\MINERAL OIL\PETROLATUM [Concomitant]
     Active Substance: GLYCERIN\MINERAL OIL\PETROLATUM
     Indication: Product used for unknown indication
     Dates: start: 20241211
  32. ENALAPRIL [Concomitant]
     Active Substance: ENALAPRIL
     Indication: Product used for unknown indication
  33. IRON [Concomitant]
     Active Substance: IRON
     Indication: Product used for unknown indication
     Dates: start: 20241009, end: 20241009
  34. PIPERACILLIN AND TAZOBACTAM [Concomitant]
     Active Substance: PIPERACILLIN SODIUM\TAZOBACTAM SODIUM
     Indication: Pneumonia
     Dates: start: 20241221, end: 20241225

REACTIONS (15)
  - Pneumonia [Recovered/Resolved]
  - Dyspepsia [Recovered/Resolved]
  - Vomiting [Recovered/Resolved]
  - Flank pain [Unknown]
  - Chromaturia [Unknown]
  - Abdominal pain lower [Unknown]
  - Large intestine infection [Recovered/Resolved]
  - Somnolence [Unknown]
  - Xeroderma [Unknown]
  - Respiratory tract infection [Not Recovered/Not Resolved]
  - Hypoxia [Unknown]
  - C-reactive protein increased [Unknown]
  - Immune-mediated lung disease [Unknown]
  - Staphylococcus test positive [Unknown]
  - Autoimmune lung disease [Unknown]

NARRATIVE: CASE EVENT DATE: 20241027
